FAERS Safety Report 8252644-7 (Version None)
Quarter: 2012Q2

REPORT INFORMATION
  Report Type: 
  Country: None (occurrence: None)
  Receive Date: 20120402
  Receipt Date: 20110801
  Transmission Date: 20120825
  Serious: No
  Sender: FDA-Public Use
  Company Number: US-ABBOTT-11P-163-0843667-00

PATIENT
  Age: 47 Year
  Sex: Male
  Weight: 86.26 kg

DRUGS (4)
  1. DULERAL [Concomitant]
     Indication: ASTHMA
  2. ANDROGEL [Suspect]
     Indication: BLOOD TESTOSTERONE DECREASED
     Dosage: TWO PACKETS PER DAY
     Dates: start: 20090101, end: 20110701
  3. UNKNOWN MEDICATIONS (NON-ABBOTT) [Suspect]
     Indication: PRODUCT USED FOR UNKNOWN INDICATION
  4. ANDROGEL [Suspect]
     Indication: BLOOD TESTOSTERONE DECREASED
     Dosage: 4 PUMPS PER DAY
     Dates: start: 20110701

REACTIONS (2)
  - MYALGIA [None]
  - APPLICATION SITE PAIN [None]
